FAERS Safety Report 6961785 (Version 2)
Quarter: 2020Q3

REPORT INFORMATION
  Report Type: Report from Study
  Country: ZA (occurrence: ZA)
  Receive Date: 20090406
  Receipt Date: 20090526
  Transmission Date: 20201104
  Serious: Yes (Hospitalization)
  Sender: FDA-Public Use
  Company Number: ZA-WYE-H08742909

PATIENT
  Age: 67 Year
  Sex: Female
  Weight: 70.9 kg

DRUGS (5)
  1. ROFERON?A [Suspect]
     Active Substance: INTERFERON ALFA-2A
     Dosage: 9 MU 3X WEEKLY
     Route: 058
     Dates: start: 20090406
  2. AVASTIN [Suspect]
     Active Substance: BEVACIZUMAB
     Route: 042
     Dates: start: 20090415
  3. ROFERON?A [Suspect]
     Active Substance: INTERFERON ALFA-2A
     Indication: RENAL CELL CARCINOMA
     Dosage: 9 MU 3X WEEKLY
     Route: 058
     Dates: start: 20090202, end: 20090323
  4. AVASTIN [Suspect]
     Active Substance: BEVACIZUMAB
     Indication: RENAL CELL CARCINOMA
     Route: 042
     Dates: start: 20090202, end: 20090323
  5. PERINDOPRIL ERBUMINE. [Concomitant]
     Active Substance: PERINDOPRIL ERBUMINE
     Indication: HYPERTENSION
     Route: 048

REACTIONS (1)
  - Epistaxis [Recovered/Resolved]

NARRATIVE: CASE EVENT DATE: 20090326
